FAERS Safety Report 13386577 (Version 1)
Quarter: 2017Q1

REPORT INFORMATION
  Report Type: Spontaneous
  Country: US (occurrence: US)
  Receive Date: 20170330
  Receipt Date: 20170330
  Transmission Date: 20170429
  Serious: No
  Sender: FDA-Public Use
  Company Number: US-PFIZER INC-2017134302

PATIENT
  Age: 74 Year
  Sex: Female
  Weight: 61 kg

DRUGS (1)
  1. XELJANZ XR [Suspect]
     Active Substance: TOFACITINIB CITRATE
     Indication: RHEUMATOID ARTHRITIS
     Dosage: 11 MG, 1X/DAY
     Route: 048
     Dates: start: 20170219, end: 20170317

REACTIONS (5)
  - Weight decreased [Unknown]
  - Diarrhoea [Not Recovered/Not Resolved]
  - Condition aggravated [Unknown]
  - Feeling abnormal [Not Recovered/Not Resolved]
  - Visual acuity reduced [Unknown]

NARRATIVE: CASE EVENT DATE: 201703
